FAERS Safety Report 7400414-1 (Version None)
Quarter: 2011Q1

REPORT INFORMATION
  Report Type: 
  Country: None (occurrence: None)
  Receive Date: 20110329
  Receipt Date: 20110315
  Transmission Date: 20110831
  Serious: Yes (Hospitalization, Other)
  Sender: FDA-Public Use
  Company Number: MC201100109

PATIENT
  Sex: Male

DRUGS (6)
  1. CLONIDINE [Concomitant]
  2. AMLODIPINE [Concomitant]
  3. LABETALOL HCL [Concomitant]
  4. NICARDIPINE HCL [Concomitant]
  5. CLEVIPREX [Suspect]
     Dosage: 2ML/HR, TITRATE TO SPB{150 CONTINUOUS IV DRIP, INTRAVENOUS
     Route: 041
  6. COREG [Concomitant]

REACTIONS (2)
  - CARDIAC ARREST [None]
  - HYPERTENSION [None]
